FAERS Safety Report 4546600-X (Version None)
Quarter: 2005Q1

REPORT INFORMATION
  Report Type: 
  Country: None (occurrence: None)
  Receive Date: 20050103
  Receipt Date: 20041214
  Transmission Date: 20050727
  Serious: Yes (Death, Other)
  Sender: FDA-Public Use
  Company Number: GBS030212586

PATIENT
  Age: 52 Year
  Sex: Female
  Weight: 50 kg

DRUGS (3)
  1. PROZAC [Suspect]
     Indication: DEPRESSION
     Dosage: 20 MG/DAY
     Dates: start: 20020811
  2. ENSURE [Concomitant]
  3. ST JOHN'S WORT [Concomitant]

REACTIONS (21)
  - ANXIETY [None]
  - APATHY [None]
  - CAMPYLOBACTER INTESTINAL INFECTION [None]
  - COMPLETED SUICIDE [None]
  - CORONARY ARTERY ATHEROSCLEROSIS [None]
  - DEPRESSION [None]
  - DISTURBANCE IN ATTENTION [None]
  - EARLY MORNING AWAKENING [None]
  - EATING DISORDER SYMPTOM [None]
  - EMOTIONAL DISORDER [None]
  - FEAR [None]
  - FRACTURE [None]
  - INJURY ASPHYXIATION [None]
  - INSOMNIA [None]
  - MEMORY IMPAIRMENT [None]
  - REFUSAL OF TREATMENT BY PATIENT [None]
  - SUICIDAL IDEATION [None]
  - TINNITUS [None]
  - TOXICOLOGIC TEST ABNORMAL [None]
  - TREMOR [None]
  - WEIGHT DECREASED [None]
